FAERS Safety Report 22007892 (Version 1)
Quarter: 2023Q1

REPORT INFORMATION
  Report Type: Spontaneous
  Country: ES (occurrence: ES)
  Receive Date: 20230218
  Receipt Date: 20230218
  Transmission Date: 20230417
  Serious: Yes (Life-Threatening, Hospitalization)
  Sender: FDA-Public Use
  Company Number: None

PATIENT
  Age: 65 Year
  Sex: Male

DRUGS (2)
  1. CISPLATIN [Interacting]
     Active Substance: CISPLATIN
     Indication: Lung neoplasm malignant
     Dosage: 442 MILLIGRAMS (4.16 MG/TOTAL) REDUCED TO 80% 03/01/2023
     Dates: start: 20221205, end: 20230103
  2. GEMCITABINE [Interacting]
     Active Substance: GEMCITABINE
     Indication: Lung neoplasm malignant
     Dosage: 1960 MG (1000MG/M2)
     Dates: start: 20221205, end: 20230103

REACTIONS (2)
  - Thrombocytopenia [Recovering/Resolving]
  - Drug interaction [Unknown]

NARRATIVE: CASE EVENT DATE: 20230117
